FAERS Safety Report 6157741-8 (Version None)
Quarter: 2009Q2

REPORT INFORMATION
  Report Type: 
  Country: None (occurrence: None)
  Receive Date: 20090414
  Receipt Date: 20090330
  Transmission Date: 20091009
  Serious: Yes (Hospitalization)
  Sender: FDA-Public Use
  Company Number: 2009S1005484

PATIENT
  Age: 72 Year
  Sex: Female

DRUGS (7)
  1. ESOMEPRAZOLE [Suspect]
     Indication: ABDOMINAL DISCOMFORT
     Dosage: DAILY
  2. FAMOTIDINE [Suspect]
     Indication: ABDOMINAL DISCOMFORT
     Dosage: DAILY
  3. GINGER [Suspect]
  4. GINSENG [Suspect]
  5. GINKGO BILOBA [Suspect]
  6. ECHINACEA /01323502/ [Suspect]
  7. ECHINACEA /01323502/ [Suspect]

REACTIONS (11)
  - AMNESIA [None]
  - ANAEMIA [None]
  - ASTHENIA [None]
  - BLOOD ALBUMIN DECREASED [None]
  - CEREBRAL ATROPHY [None]
  - DEMENTIA [None]
  - GAIT DISTURBANCE [None]
  - HYPOVITAMINOSIS [None]
  - IRON DEFICIENCY [None]
  - PROTEIN TOTAL DECREASED [None]
  - SINUS TACHYCARDIA [None]
